FAERS Safety Report 6555253-0 (Version None)
Quarter: 2010Q1

REPORT INFORMATION
  Report Type: 
  Country: None (occurrence: None)
  Receive Date: 20100128
  Receipt Date: 20090122
  Transmission Date: 20100710
  Serious: No
  Sender: FDA-Public Use
  Company Number: A0764819A

PATIENT
  Age: 17 Year
  Sex: Female

DRUGS (2)
  1. BUPROPION HYDROCHLORIDE [Suspect]
     Indication: DEPRESSION
     Route: 048
     Dates: start: 20080215
  2. LITHIUM [Concomitant]
     Dosage: 600MG PER DAY
     Dates: start: 20080501

REACTIONS (2)
  - BODY TEMPERATURE FLUCTUATION [None]
  - DEPRESSIVE SYMPTOM [None]
